FAERS Safety Report 24890158 (Version 1)
Quarter: 2025Q1

REPORT INFORMATION
  Report Type: Spontaneous
  Country: US (occurrence: US)
  Receive Date: 20250127
  Receipt Date: 20250127
  Transmission Date: 20250408
  Serious: Yes (Other)
  Sender: DR REDDYS
  Company Number: US-DRL-USA-USA/2025/01/001133

PATIENT
  Age: 4 Decade
  Sex: Female

DRUGS (7)
  1. METFORMIN [Suspect]
     Active Substance: METFORMIN HYDROCHLORIDE
     Indication: Hidradenitis
  2. APREMILAST [Suspect]
     Active Substance: APREMILAST
     Indication: Hidradenitis
  3. INFLIXIMAB [Concomitant]
     Active Substance: INFLIXIMAB
     Indication: Hidradenitis
  4. ADALIMUMAB [Concomitant]
     Active Substance: ADALIMUMAB
     Indication: Hidradenitis
  5. CERTOLIZUMAB [Concomitant]
     Active Substance: CERTOLIZUMAB
     Indication: Hidradenitis
  6. USTEKINUMAB [Concomitant]
     Active Substance: USTEKINUMAB
     Indication: Hidradenitis
  7. SPIRONOLACTONE [Concomitant]
     Active Substance: SPIRONOLACTONE
     Indication: Hidradenitis

REACTIONS (1)
  - Drug ineffective for unapproved indication [Unknown]
